FAERS Safety Report 6061652-6 (Version None)
Quarter: 2009Q1

REPORT INFORMATION
  Report Type: 
  Country: None (occurrence: None)
  Receive Date: 20090202
  Receipt Date: 20090126
  Transmission Date: 20090719
  Serious: Yes (Other)
  Sender: FDA-Public Use
  Company Number: B0532467A

PATIENT
  Age: 28 Day
  Sex: Male

DRUGS (4)
  1. ZIDOVUDINE [Suspect]
     Indication: ANTIVIRAL PROPHYLAXIS
     Dosage: .53ML FOUR TIMES PER DAY
     Route: 048
     Dates: start: 20061221, end: 20070131
  2. ZIDOVUDINE [Concomitant]
  3. LAMIVUDINE [Concomitant]
     Indication: ANTIVIRAL PROPHYLAXIS
  4. NELFINAVIR MESILATE [Concomitant]
     Indication: ANTIVIRAL PROPHYLAXIS

REACTIONS (4)
  - ANAEMIA [None]
  - CAESAREAN SECTION [None]
  - DRUG EXPOSURE DURING PREGNANCY [None]
  - HAEMOGLOBIN DECREASED [None]
